FAERS Safety Report 10108484 (Version 1)
Quarter: 2014Q2

REPORT INFORMATION
  Report Type: Spontaneous
  Country: US (occurrence: US)
  Receive Date: 20140425
  Receipt Date: 20140425
  Transmission Date: 20141212
  Serious: No
  Sender: FDA-Public Use
  Company Number: US-BIOGENIDEC-2014BI022974

PATIENT
  Age: 55 Year
  Sex: Female

DRUGS (1)
  1. AVONEX [Suspect]
     Indication: MULTIPLE SCLEROSIS
     Route: 030
     Dates: start: 20130823

REACTIONS (25)
  - Musculoskeletal discomfort [Not Recovered/Not Resolved]
  - Weight increased [Not Recovered/Not Resolved]
  - Hypoaesthesia [Unknown]
  - Back pain [Unknown]
  - Mobility decreased [Unknown]
  - Urinary retention [Unknown]
  - Loss of bladder sensation [Unknown]
  - Haemorrhage [Unknown]
  - General symptom [Unknown]
  - Cystitis [Unknown]
  - Nephrolithiasis [Unknown]
  - Acne [Recovered/Resolved]
  - Tremor [Not Recovered/Not Resolved]
  - Rash pustular [Recovered/Resolved]
  - Depression [Not Recovered/Not Resolved]
  - Pain [Not Recovered/Not Resolved]
  - Anxiety [Not Recovered/Not Resolved]
  - Pyrexia [Unknown]
  - Rash pruritic [Not Recovered/Not Resolved]
  - Drug ineffective [Not Recovered/Not Resolved]
  - Fatigue [Unknown]
  - Malaise [Unknown]
  - Multiple sclerosis relapse [Unknown]
  - Rash [Not Recovered/Not Resolved]
  - Mood altered [Unknown]
